FAERS Safety Report 18211735 (Version 1)
Quarter: 2020Q3

REPORT INFORMATION
  Report Type: Spontaneous
  Country: US (occurrence: US)
  Receive Date: 20200831
  Receipt Date: 20200831
  Transmission Date: 20201103
  Serious: Yes (Hospitalization, Other)
  Sender: FDA-Public Use
  Company Number: US-SA-2020SA231520

PATIENT

DRUGS (3)
  1. ZYRETIC [Concomitant]
     Route: 065
  2. XOLAIR [Concomitant]
     Active Substance: OMALIZUMAB
     Route: 065
  3. DUPIXENT [Suspect]
     Active Substance: DUPILUMAB
     Indication: DERMATITIS ATOPIC
     Dosage: 300 MG, QOW
     Route: 058
     Dates: start: 20190916

REACTIONS (4)
  - Sensitive skin [Unknown]
  - Pulmonary embolism [Unknown]
  - Therapeutic response shortened [Unknown]
  - Eczema [Unknown]

NARRATIVE: CASE EVENT DATE: 20200422
